FAERS Safety Report 5696591-3 (Version None)
Quarter: 2008Q2

REPORT INFORMATION
  Report Type: 
  Country: None (occurrence: None)
  Receive Date: 20080404
  Receipt Date: 20080404
  Transmission Date: 20081010
  Serious: No
  Sender: FDA-Public Use
  Company Number: None

PATIENT
  Age: 40 Year
  Sex: Female
  Weight: 57.6068 kg

DRUGS (2)
  1. CHANTIX [Suspect]
     Indication: SMOKING CESSATION THERAPY
     Dosage: 1 MG DAILY PO
     Route: 048
     Dates: start: 20080317, end: 20080402
  2. EFFEXOR [Concomitant]

REACTIONS (6)
  - AGGRESSION [None]
  - AGITATION [None]
  - EMOTIONAL DISORDER [None]
  - FATIGUE [None]
  - HYPERSOMNIA [None]
  - SUICIDAL IDEATION [None]
